FAERS Safety Report 7072338-3 (Version None)
Quarter: 2010Q4

REPORT INFORMATION
  Report Type: 
  Country: None (occurrence: None)
  Receive Date: 20101029
  Receipt Date: 20100210
  Transmission Date: 20110411
  Serious: No
  Sender: FDA-Public Use
  Company Number: A0839223A

PATIENT
  Age: 55 Year
  Sex: Female

DRUGS (5)
  1. ADVAIR DISKUS 100/50 [Suspect]
     Indication: BRONCHITIS
     Dosage: 1PUFF TWICE PER DAY
     Route: 055
     Dates: start: 20100105, end: 20100111
  2. AUGMENTIN '125' [Concomitant]
     Dates: start: 20100105
  3. PROVENTIL [Concomitant]
     Dates: start: 20100125
  4. ZITHROMAX [Concomitant]
     Dates: start: 20100105
  5. MEDROL [Concomitant]
     Dates: start: 20100105

REACTIONS (4)
  - ADVERSE DRUG REACTION [None]
  - GLOSSODYNIA [None]
  - OROPHARYNGEAL PAIN [None]
  - THROAT IRRITATION [None]
